FAERS Safety Report 4335129-X (Version None)
Quarter: 2004Q2

REPORT INFORMATION
  Report Type: 
  Country: None (occurrence: None)
  Receive Date: 20040405
  Receipt Date: 20040322
  Transmission Date: 20050107
  Serious: Yes (Other)
  Sender: FDA-Public Use
  Company Number: 230014M04GBR

PATIENT
  Sex: Female

DRUGS (7)
  1. REBIF [Suspect]
     Dosage: 44 NOT REPORTED, NOT REPORTED, NOT REPORTED
  2. X [Concomitant]
  3. X [Concomitant]
  4. X [Concomitant]
  5. X [Concomitant]
  6. X [Concomitant]
  7. X [Concomitant]

REACTIONS (1)
  - CONVULSION [None]
